FAERS Safety Report 25468266 (Version 1)
Quarter: 2025Q2

REPORT INFORMATION
  Report Type: Spontaneous
  Country: US (occurrence: None)
  Receive Date: 20250620
  Receipt Date: 20250620
  Transmission Date: 20250717
  Serious: Yes (unspecified)
  Sender: FDA-CTU
  Company Number: None

PATIENT

DRUGS (1)
  1. OXCARBAZEPINE [Suspect]
     Active Substance: OXCARBAZEPINE
     Indication: Partial seizures
     Dosage: OTHER QUANTITY : 2 ML;?FREQUENCY : TWICE A DAY;?
     Route: 048
     Dates: start: 20250228, end: 20250530

REACTIONS (12)
  - Musculoskeletal chest pain [None]
  - Constipation [None]
  - Intussusception [None]
  - Gastritis [None]
  - Listless [None]
  - Petit mal epilepsy [None]
  - Skin warm [None]
  - Headache [None]
  - Ocular hyperaemia [None]
  - Burning sensation [None]
  - Serum sickness [None]
  - Diarrhoea [None]

NARRATIVE: CASE EVENT DATE: 20250527
